FAERS Safety Report 10340493 (Version 1)
Quarter: 2014Q3

REPORT INFORMATION
  Report Type: Spontaneous
  Country: FR (occurrence: FR)
  Receive Date: 20140724
  Receipt Date: 20140724
  Transmission Date: 20150326
  Serious: Yes (Hospitalization)
  Sender: FDA-Public Use
  Company Number: FR-PFIZER INC-2014203354

PATIENT
  Age: 67 Year
  Sex: Female

DRUGS (3)
  1. VANCOMYCINE [Suspect]
     Active Substance: VANCOMYCIN
     Dosage: 3 G, DAILY
     Route: 042
     Dates: start: 20140414, end: 20140502
  2. TAZOCILLINE [Suspect]
     Active Substance: PIPERACILLIN SODIUM\TAZOBACTAM SODIUM
     Dosage: 4 G, DAILY
     Route: 042
     Dates: start: 20140414, end: 20140502
  3. TRIDESONIT [Concomitant]
     Active Substance: DESONIDE
     Indication: ERYTHEMA
     Dosage: UNK
     Dates: start: 20140424

REACTIONS (1)
  - Drug reaction with eosinophilia and systemic symptoms [Recovering/Resolving]

NARRATIVE: CASE EVENT DATE: 20140502
